FAERS Safety Report 8531560-7 (Version None)
Quarter: 2012Q3

REPORT INFORMATION
  Report Type: 
  Country: None (occurrence: None)
  Receive Date: 20120723
  Receipt Date: 20120711
  Transmission Date: 20120928
  Serious: Yes (Other)
  Sender: FDA-Public Use
  Company Number: JP-UCBSA-061949

PATIENT
  Age: 25 Year
  Sex: Female

DRUGS (2)
  1. XYZAL [Suspect]
     Indication: DERMATITIS ATOPIC
     Route: 048
     Dates: start: 20120622, end: 20120709
  2. OLOPATADINE HCL [Concomitant]
     Dates: end: 20120622

REACTIONS (1)
  - METRORRHAGIA [None]
